FAERS Safety Report 5391267-4 (Version None)
Quarter: 2007Q3

REPORT INFORMATION
  Report Type: 
  Country: None (occurrence: None)
  Receive Date: 20070719
  Receipt Date: 20070713
  Transmission Date: 20080115
  Serious: Yes (Hospitalization)
  Sender: FDA-Public Use
  Company Number: HQWYE069216JUL07

PATIENT
  Age: 52 Year
  Sex: Female
  Weight: 77.18 kg

DRUGS (3)
  1. ADVIL COLD AND SINUS [Suspect]
     Indication: SINUS DISORDER
     Dosage: 1 AT 6PM
     Route: 065
     Dates: start: 20070630, end: 20070630
  2. SYNTHROID [Concomitant]
     Indication: THYROID DISORDER
     Dosage: UNKNOWN
     Route: 065
  3. IBUPROFEN [Suspect]
     Indication: PAIN
     Dosage: ^2^ TOTAL  AT 1PM
     Route: 065
     Dates: start: 20070630, end: 20070630

REACTIONS (3)
  - CHEST PAIN [None]
  - LIP SWELLING [None]
  - URTICARIA [None]
